FAERS Safety Report 5139821-9 (Version None)
Quarter: 2006Q4

REPORT INFORMATION
  Report Type: 
  Country: None (occurrence: None)
  Receive Date: 20061026
  Receipt Date: 20061026
  Transmission Date: 20070319
  Serious: Yes (Hospitalization)
  Sender: FDA-Public Use
  Company Number: None

PATIENT
  Age: 69 Year
  Sex: Male

DRUGS (2)
  1. VELCADE [Suspect]
     Indication: MANTLE CELL LYMPHOMA
     Dosage: IV DAY 1 + 4 OF 21 DAY CYCLE
     Route: 042
  2. R-CHOP [Suspect]
     Indication: MANTLE CELL LYMPHOMA
     Dosage: DAY 1 OF 21 DAY CYCLE

REACTIONS (6)
  - CHILLS [None]
  - INFUSION RELATED REACTION [None]
  - NAUSEA [None]
  - PRURITUS [None]
  - PYREXIA [None]
  - URTICARIA [None]
